FAERS Safety Report 17716523 (Version 1)
Quarter: 2020Q2

REPORT INFORMATION
  Report Type: Report from Study
  Country: None (occurrence: IT)
  Receive Date: 20200428
  Receipt Date: 20200428
  Transmission Date: 20200714
  Serious: Yes (Hospitalization, Other)
  Sender: FDA-Public Use
  Company Number: IT-ABBVIE-20K-083-3378801-00

PATIENT
  Age: 69 Year
  Sex: Female

DRUGS (1)
  1. DUODOPA [Suspect]
     Active Substance: CARBIDOPA\LEVODOPA
     Indication: PARKINSON^S DISEASE
     Dosage: MD: 6+3?CR: 1,3 (14H)?ED: 2,5
     Route: 050
     Dates: start: 20190918, end: 20200214

REACTIONS (3)
  - Dysphagia [Unknown]
  - Drug ineffective [Unknown]
  - Headache [Unknown]

NARRATIVE: CASE EVENT DATE: 202001
